FAERS Safety Report 8368220-1 (Version None)
Quarter: 2012Q2

REPORT INFORMATION
  Report Type: 
  Country: None (occurrence: None)
  Receive Date: 20120517
  Receipt Date: 20120509
  Transmission Date: 20120825
  Serious: Yes (Disabling)
  Sender: FDA-Public Use
  Company Number: PT-ABBOTT-12P-130-0934532-00

PATIENT
  Age: 27 Year
  Sex: Male

DRUGS (5)
  1. MIGRETIL [Interacting]
     Indication: MIGRAINE
     Route: 048
     Dates: start: 20000701
  2. STAVUDINE [Concomitant]
     Indication: HIV INFECTION
  3. LAMIVUDINE (EPIVIR HBV) [Concomitant]
     Indication: HIV INFECTION
  4. NORVIR [Suspect]
     Indication: HIV INFECTION
     Route: 048
  5. INDINIVIR SULFATE [Concomitant]
     Indication: HIV INFECTION

REACTIONS (5)
  - PAIN IN EXTREMITY [None]
  - DRUG INTERACTION [None]
  - PERIPHERAL ISCHAEMIA [None]
  - MALAISE [None]
  - VOMITING [None]
